FAERS Safety Report 6789015-6 (Version None)
Quarter: 2010Q2

REPORT INFORMATION
  Report Type: 
  Country: None (occurrence: None)
  Receive Date: 20100623
  Receipt Date: 20080619
  Transmission Date: 20101027
  Serious: No
  Sender: FDA-Public Use
  Company Number: US-PFIZER INC-2008051488

PATIENT
  Age: 48 Year
  Sex: Female
  Weight: 68.181 kg

DRUGS (1)
  1. GEODON [Suspect]
     Dates: start: 20080401

REACTIONS (1)
  - FATIGUE [None]
